FAERS Safety Report 18626817 (Version 2)
Quarter: 2020Q4

REPORT INFORMATION
  Report Type: Spontaneous
  Country: HU (occurrence: HU)
  Receive Date: 20201217
  Receipt Date: 20201229
  Transmission Date: 20210114
  Serious: Yes (Other)
  Sender: FDA-Public Use
  Company Number: NVSC2020HU328872

PATIENT

DRUGS (4)
  1. ANAFRANIL [Suspect]
     Active Substance: CLOMIPRAMINE HYDROCHLORIDE
     Indication: HEADACHE
     Dosage: 75 MG
     Route: 065
  2. ANAFRANIL [Suspect]
     Active Substance: CLOMIPRAMINE HYDROCHLORIDE
     Indication: STRESS
     Dosage: UNK, 5-10 MG
     Route: 065
     Dates: start: 20201012
  3. SYNCUMAR [Suspect]
     Active Substance: ACENOCOUMAROL
     Indication: PULMONARY EMBOLISM
     Dosage: 2 DF, QD
     Route: 065
  4. SYNCUMAR [Suspect]
     Active Substance: ACENOCOUMAROL
     Dosage: 3 DF, QD
     Route: 065

REACTIONS (3)
  - International normalised ratio decreased [Recovered/Resolved]
  - Pulmonary embolism [Unknown]
  - Blood pressure increased [Unknown]
